FAERS Safety Report 25453754 (Version 1)
Quarter: 2025Q2

REPORT INFORMATION
  Report Type: Spontaneous
  Country: JP (occurrence: JP)
  Receive Date: 20250619
  Receipt Date: 20250619
  Transmission Date: 20250717
  Serious: Yes (Hospitalization)
  Sender: UNITED THERAPEUTICS
  Company Number: JP-UNITED THERAPEUTICS-UNT-2024-021569

PATIENT
  Age: 25 Year
  Sex: Female

DRUGS (1)
  1. TYVASO [Suspect]
     Active Substance: TREPROSTINIL
     Indication: Product used for unknown indication
     Dosage: 18 ?G, QID
     Dates: start: 20240625

REACTIONS (2)
  - Nasopharyngitis [Unknown]
  - Stomatitis [Unknown]

NARRATIVE: CASE EVENT DATE: 20240630
